FAERS Safety Report 23070587 (Version 1)
Quarter: 2023Q4

REPORT INFORMATION
  Report Type: Spontaneous
  Country: IN (occurrence: IN)
  Receive Date: 20231016
  Receipt Date: 20231016
  Transmission Date: 20240110
  Serious: Yes (Hospitalization)
  Sender: FDA-Public Use
  Company Number: IN-GE HEALTHCARE-2023CSU009018

PATIENT
  Age: 49 Year
  Sex: Female

DRUGS (4)
  1. OMNIPAQUE [Suspect]
     Active Substance: IOHEXOL
     Indication: Computerised tomogram abdomen
     Dosage: UNK UNK, SINGLE
     Route: 042
     Dates: start: 20231004, end: 20231004
  2. OMNIPAQUE [Suspect]
     Active Substance: IOHEXOL
     Indication: Ovarian cyst
  3. OMNIPAQUE [Suspect]
     Active Substance: IOHEXOL
     Indication: Computerised tomogram abdomen
     Dosage: UNK UNK, SINGLE
     Route: 048
     Dates: start: 20231004, end: 20231004
  4. OMNIPAQUE [Suspect]
     Active Substance: IOHEXOL
     Indication: Ovarian cyst

REACTIONS (5)
  - Haemoglobin decreased [Unknown]
  - Nephropathy toxic [Recovering/Resolving]
  - Back pain [Recovering/Resolving]
  - Chills [Recovering/Resolving]
  - Pyrexia [Recovering/Resolving]

NARRATIVE: CASE EVENT DATE: 20231004
